FAERS Safety Report 6607852-5 (Version None)
Quarter: 2010Q1

REPORT INFORMATION
  Report Type: 
  Country: None (occurrence: None)
  Receive Date: 20100222
  Receipt Date: 20100208
  Transmission Date: 20100710
  Serious: Yes (Hospitalization)
  Sender: FDA-Public Use
  Company Number: 2009AC000191

PATIENT
  Age: 43 Year
  Sex: Male

DRUGS (22)
  1. DIGOXIN [Suspect]
     Dosage: 0.25 MG; PO
     Route: 048
     Dates: start: 20021101
  2. WARFARIN SODIUM [Concomitant]
  3. VIREAD [Concomitant]
  4. VIAGRA HYDROCODONE/APAP [Concomitant]
  5. CLINDAMYCIN [Concomitant]
  6. PENICILLIN [Concomitant]
  7. CHANTIX [Concomitant]
  8. JANTOVEN [Concomitant]
  9. FENTANYL [Concomitant]
  10. COUMADIN [Concomitant]
  11. PROAIR HFA [Concomitant]
  12. AZITHROMYC [Concomitant]
  13. GABAPENTIN [Concomitant]
  14. FUROSEMIDE [Concomitant]
  15. OXYCODONE HCL AND ACETAMINOPHEN [Concomitant]
  16. PROVENTIL [Concomitant]
  17. CLARITHROMYCIN [Concomitant]
  18. AMITRIPTYLINE HCL [Concomitant]
  19. TOPROL-XL [Concomitant]
  20. BOSENTAN [Concomitant]
  21. LORTAB [Concomitant]
  22. HESPERA [Concomitant]

REACTIONS (13)
  - ALCOHOL USE [None]
  - ATRIOVENTRICULAR BLOCK COMPLETE [None]
  - DIZZINESS [None]
  - DYSPNOEA [None]
  - FEAR [None]
  - GASTROINTESTINAL HAEMORRHAGE [None]
  - HEART RATE DECREASED [None]
  - HEART RATE IRREGULAR [None]
  - HYPERTENSION [None]
  - MICTURITION URGENCY [None]
  - MULTIPLE INJURIES [None]
  - THERAPEUTIC AGENT TOXICITY [None]
  - VISION BLURRED [None]
